FAERS Safety Report 8331461-3 (Version None)
Quarter: 2012Q2

REPORT INFORMATION
  Report Type: 
  Country: None (occurrence: None)
  Receive Date: 20120502
  Receipt Date: 20120418
  Transmission Date: 20120825
  Serious: No
  Sender: FDA-Public Use
  Company Number: US-AMGEN-USASP2012024583

PATIENT
  Age: 52 Year
  Sex: Female

DRUGS (9)
  1. ENBREL [Suspect]
     Indication: RHEUMATOID ARTHRITIS
     Dosage: 50 MG, QWK
     Dates: start: 20120201
  2. MAGNESIUM [Concomitant]
     Dosage: UNK
  3. MULTI-VITAMINS [Concomitant]
     Dosage: UNK
  4. CALCIUM [Concomitant]
     Dosage: UNK
  5. PREDNISONE [Concomitant]
     Dosage: UNK
  6. MELOXICAM [Concomitant]
     Dosage: UNK
  7. FISH OIL [Concomitant]
     Dosage: UNK
  8. SULFASALAZINE GF [Concomitant]
     Indication: RHEUMATOID ARTHRITIS
     Dosage: 2 TABLETS TWICE DAILY
     Dates: start: 20120402
  9. TRAMADOL HCL [Concomitant]
     Dosage: UNK

REACTIONS (3)
  - RHEUMATOID ARTHRITIS [None]
  - LABORATORY TEST ABNORMAL [None]
  - LIVER DISORDER [None]
